FAERS Safety Report 8366579-2 (Version None)
Quarter: 2012Q2

REPORT INFORMATION
  Report Type: 
  Country: None (occurrence: None)
  Receive Date: 20120517
  Receipt Date: 20120507
  Transmission Date: 20120825
  Serious: Yes (Hospitalization)
  Sender: FDA-Public Use
  Company Number: HU-TEVA-338184ISR

PATIENT
  Sex: Male

DRUGS (5)
  1. GLIMEPIRIDE [Suspect]
     Indication: TYPE 2 DIABETES MELLITUS
  2. SAXAGLIPTIN/PLACEBO [Suspect]
     Indication: TYPE 2 DIABETES MELLITUS
     Dates: start: 20100922
  3. ASPIRIN [Concomitant]
  4. GLURENORM [Suspect]
     Indication: TYPE 2 DIABETES MELLITUS
     Dates: start: 20111122, end: 20111210
  5. METFORMIN HYDROCHLORIDE [Suspect]
     Indication: TYPE 2 DIABETES MELLITUS
     Dates: end: 20111207

REACTIONS (2)
  - DIABETIC NEPHROPATHY [None]
  - HYPOGLYCAEMIA [None]
